FAERS Safety Report 8992448 (Version 2)
Quarter: 2013Q1

REPORT INFORMATION
  Report Type: Spontaneous
  Country: NL (occurrence: NL)
  Receive Date: 20121231
  Receipt Date: 20130103
  Transmission Date: 20140127
  Serious: Yes (Other)
  Sender: FDA-Public Use
  Company Number: NL-JNJFOC-20121211100

PATIENT
  Sex: 0

DRUGS (26)
  1. DOXORUBICIN [Suspect]
     Indication: BONE SARCOMA
     Dosage: FOR 3 DAYS
     Route: 042
  2. DOXORUBICIN [Suspect]
     Indication: BONE SARCOMA
     Dosage: 2-3 CONSECUTIVE DAYS
     Route: 042
  3. DOXORUBICIN [Suspect]
     Indication: BONE SARCOMA
     Dosage: REDUCED DOSE
     Route: 042
  4. DOXORUBICIN [Suspect]
     Indication: BONE SARCOMA
     Dosage: , FOR 3 DAYS
     Route: 042
  5. DOXORUBICIN [Suspect]
     Indication: BONE SARCOMA
     Dosage: FOR 3 DAYS
     Route: 065
  6. DOXORUBICIN [Suspect]
     Indication: BONE SARCOMA
     Dosage: , FOR 3 DAYS
     Route: 065
  7. DOXORUBICIN [Suspect]
     Indication: BONE SARCOMA
     Dosage: 2-3 CONSECUTIVE DAYS
     Route: 065
  8. DOXORUBICIN [Suspect]
     Indication: BONE SARCOMA
     Dosage: REDUCED DOSE
     Route: 065
  9. CISPLATIN [Suspect]
     Indication: BONE SARCOMA
     Dosage: CONTINUOUS INFUSION
     Route: 065
  10. CISPLATIN [Suspect]
     Indication: BONE SARCOMA
     Dosage: REDUCED DOSE
     Route: 065
  11. CISPLATIN [Suspect]
     Indication: BONE SARCOMA
     Dosage: CONTINUOUS INFUSION
     Route: 065
  12. CISPLATIN [Suspect]
     Indication: BONE SARCOMA
     Dosage: 6 CYCLES, REPEATED 6 HOURS INFUSION
     Route: 065
  13. METHOTREXATE [Suspect]
     Indication: BONE SARCOMA
     Dosage: 12 COURSES
     Route: 065
  14. METHOTREXATE [Suspect]
     Indication: BONE SARCOMA
     Dosage: 8-12 CYCLES. 8-12 MG/M2
     Route: 065
  15. METHOTREXATE [Suspect]
     Indication: BONE SARCOMA
     Dosage: REDUCED DOSE
     Route: 065
  16. METHOTREXATE [Suspect]
     Indication: BONE SARCOMA
     Dosage: 12 CYCLES, 8-12 G/M2
     Route: 065
  17. FOLINIC ACID [Suspect]
     Indication: BONE SARCOMA
     Route: 065
  18. FOLINIC ACID [Suspect]
     Indication: BONE SARCOMA
     Route: 065
  19. FOLINIC ACID [Suspect]
     Indication: BONE SARCOMA
     Dosage: REDUCED DOSE
     Route: 065
  20. FOLINIC ACID [Suspect]
     Indication: BONE SARCOMA
     Route: 065
  21. BLEOMYCIN [Suspect]
     Indication: BONE SARCOMA
     Dosage: REDUCED DOSE
     Route: 065
  22. BLEOMYCIN [Suspect]
     Indication: BONE SARCOMA
     Dosage: 1-2 CYCLES
     Route: 065
  23. CYCLOPHOSPHAMIDE [Suspect]
     Indication: BONE SARCOMA
     Dosage: 1-2 CYCLES
     Route: 065
  24. CYCLOPHOSPHAMIDE [Suspect]
     Indication: BONE SARCOMA
     Dosage: REDUCED DOSE
     Route: 065
  25. DACTINOMYCIN [Suspect]
     Indication: BONE SARCOMA
     Dosage: 1-2 CYCLES
     Route: 065
  26. DACTINOMYCIN [Suspect]
     Indication: BONE SARCOMA
     Dosage: REDUCED DOSE
     Route: 065

REACTIONS (2)
  - Toxic encephalopathy [Unknown]
  - Off label use [Unknown]
